FAERS Safety Report 4633167-0 (Version None)
Quarter: 2005Q2

REPORT INFORMATION
  Report Type: 
  Country: None (occurrence: None)
  Receive Date: 20050411
  Receipt Date: 20050411
  Transmission Date: 20051028
  Serious: Yes (Death, Hospitalization, Other)
  Sender: FDA-Public Use
  Company Number: None

PATIENT
  Age: 71 Year
  Sex: Female

DRUGS (12)
  1. RITUXAN [Suspect]
     Indication: B-CELL LYMPHOMA
     Dosage: Q WK
     Dates: start: 20040408, end: 20040429
  2. ASPIRIN [Concomitant]
  3. FERROUS SULFATE TAB [Concomitant]
  4. VIOXX [Concomitant]
  5. VICODIN [Concomitant]
  6. DIGOXIN [Concomitant]
  7. LIPITOR [Concomitant]
  8. ISOSORBIDE [Concomitant]
  9. LEXAPRO [Concomitant]
  10. COZAAR [Concomitant]
  11. LOTREL [Concomitant]
  12. ALBUTEROL [Concomitant]

REACTIONS (16)
  - BACK PAIN [None]
  - DENTAL CARIES [None]
  - DISSEMINATED INTRAVASCULAR COAGULATION [None]
  - FALL [None]
  - GENERALISED OEDEMA [None]
  - GROIN PAIN [None]
  - HEPATIC FAILURE [None]
  - HEPATIC TRAUMA [None]
  - HEPATITIS [None]
  - JAUNDICE [None]
  - ORAL SOFT TISSUE DISORDER [None]
  - PNEUMONIA [None]
  - RENAL DISORDER [None]
  - RENAL FAILURE ACUTE [None]
  - SPLENOMEGALY [None]
  - TUMOUR LYSIS SYNDROME [None]
